FAERS Safety Report 8235436-4 (Version None)
Quarter: 2012Q1

REPORT INFORMATION
  Report Type: 
  Country: None (occurrence: None)
  Receive Date: 20120326
  Receipt Date: 20120319
  Transmission Date: 20120608
  Serious: Yes (Other)
  Sender: FDA-Public Use
  Company Number: CH-ABBOTT-12P-151-0905337-00

PATIENT
  Age: 58 Year
  Sex: Male

DRUGS (7)
  1. PANTOPRAZOL(ZURCAL) [Concomitant]
     Indication: PRODUCT USED FOR UNKNOWN INDICATION
  2. BROMAZEPAM [Concomitant]
     Indication: PRODUCT USED FOR UNKNOWN INDICATION
  3. CANDESARTAN CILEXETIL [Concomitant]
     Indication: PRODUCT USED FOR UNKNOWN INDICATION
  4. HUMIRA [Suspect]
     Indication: CROHN'S DISEASE
     Dates: start: 20090622, end: 20110815
  5. ALLIII CEPAE HYOSCYAMI ALLANTOINUM AVOBENZONUM(KELI-MED CREAM) [Concomitant]
     Indication: PRODUCT USED FOR UNKNOWN INDICATION
     Route: 061
  6. HUMIRA [Suspect]
     Indication: SPONDYLITIS
     Dosage: 80MG EVERY TWO WEEKS
     Dates: start: 20090525, end: 20090608
  7. CO-DAFALGAN [Concomitant]
     Indication: PRODUCT USED FOR UNKNOWN INDICATION

REACTIONS (2)
  - ASPARTATE AMINOTRANSFERASE INCREASED [None]
  - ALANINE AMINOTRANSFERASE INCREASED [None]
